FAERS Safety Report 4892277-3 (Version None)
Quarter: 2006Q1

REPORT INFORMATION
  Report Type: 
  Country: None (occurrence: None)
  Receive Date: 20060125
  Receipt Date: 20060125
  Transmission Date: 20060701
  Serious: Yes (Life-Threatening, Hospitalization)
  Sender: FDA-Public Use
  Company Number: None

PATIENT
  Sex: Male
  Weight: 162.6 kg

DRUGS (13)
  1. LENALIDOMIDE 20 MG/M2 CELGENE [Suspect]
     Indication: GLIOBLASTOMA MULTIFORME
     Dosage: 20 MG/M2 X 21 DAYS PO
     Route: 048
     Dates: start: 20051111, end: 20061124
  2. KEPPRA [Concomitant]
  3. PRILOSEC [Concomitant]
  4. ASPIRIN [Concomitant]
  5. TYLENOL-500 [Concomitant]
  6. OXYCODONE [Concomitant]
  7. FLUOCINONIDE [Concomitant]
  8. PERCOCET [Concomitant]
  9. COLACE [Concomitant]
  10. AMBIEN [Concomitant]
  11. ATIVAN [Concomitant]
  12. OFLOXACIN [Concomitant]
  13. CORTISPORIN [Concomitant]

REACTIONS (7)
  - CENTRAL NERVOUS SYSTEM INFECTION [None]
  - COORDINATION ABNORMAL [None]
  - DEPRESSED LEVEL OF CONSCIOUSNESS [None]
  - DIZZINESS [None]
  - DYSARTHRIA [None]
  - EXTRADURAL ABSCESS [None]
  - HYPOAESTHESIA [None]
